FAERS Safety Report 18562657 (Version 1)
Quarter: 2020Q4

REPORT INFORMATION
  Report Type: Spontaneous
  Country: US (occurrence: US)
  Receive Date: 20201130
  Receipt Date: 20201130
  Transmission Date: 20210114
  Serious: No
  Sender: FDA-Public Use
  Company Number: US-ROCHE-2607899

PATIENT
  Sex: Female

DRUGS (5)
  1. COSOPT [Concomitant]
     Active Substance: DORZOLAMIDE HYDROCHLORIDE\TIMOLOL MALEATE
  2. ZIOPTAN [Concomitant]
     Active Substance: TAFLUPROST
  3. LUCENTIS [Suspect]
     Active Substance: RANIBIZUMAB
     Indication: NEOVASCULAR AGE-RELATED MACULAR DEGENERATION
     Route: 065
     Dates: start: 201512, end: 201602
  4. PREDNISONE. [Concomitant]
     Active Substance: PREDNISONE
  5. LUCENTIS [Suspect]
     Active Substance: RANIBIZUMAB
     Dosage: UNKNOWN
     Route: 065
     Dates: start: 20200521

REACTIONS (5)
  - Vision blurred [Not Recovered/Not Resolved]
  - Intraocular pressure increased [Unknown]
  - Myopia [Unknown]
  - Eye pain [Unknown]
  - Visual impairment [Unknown]

NARRATIVE: CASE EVENT DATE: 201602
